FAERS Safety Report 4852212-0 (Version None)
Quarter: 2005Q4

REPORT INFORMATION
  Report Type: 
  Country: None (occurrence: None)
  Receive Date: 20051213
  Receipt Date: 20051205
  Transmission Date: 20060501
  Serious: Yes (Death)
  Sender: FDA-Public Use
  Company Number: RU-GLAXOSMITHKLINE-B0403208A

PATIENT
  Age: 2 Year
  Sex: Male

DRUGS (1)
  1. SERETIDE [Suspect]
     Route: 055
     Dates: start: 20030101

REACTIONS (1)
  - DEATH [None]
